FAERS Safety Report 8908412 (Version 1)
Quarter: 2012Q4

REPORT INFORMATION
  Report Type: 
  Country: US (occurrence: US)
  Receive Date: 20121114
  Receipt Date: 20121114
  Transmission Date: 20130627
  Serious: No
  Sender: FDA-Public Use
  Company Number: US-PFIZER INC-2012284813

PATIENT
  Age: 60 Year
  Sex: Female
  Weight: 47.62 kg

DRUGS (4)
  1. CHANTIX [Suspect]
     Indication: SMOKING CESSATION THERAPY
     Dosage: 0.5 mg, 1x/day
     Route: 048
  2. CHANTIX [Suspect]
     Dosage: UNK
     Route: 048
  3. LISINOPRIL [Concomitant]
     Indication: BLOOD PRESSURE HIGH
     Dosage: UNK
  4. ACTIVELLA [Concomitant]
     Dosage: UNK

REACTIONS (2)
  - Abnormal dreams [Unknown]
  - Stress [Unknown]
